FAERS Safety Report 20431561 (Version 1)
Quarter: 2022Q1

REPORT INFORMATION
  Report Type: Spontaneous
  Country: US (occurrence: None)
  Receive Date: 20220203
  Receipt Date: 20220203
  Transmission Date: 20220423
  Serious: No
  Sender: FDA-Public Use
  Company Number: None

PATIENT
  Sex: Female

DRUGS (1)
  1. BOTOX [Suspect]
     Active Substance: ONABOTULINUMTOXINA
     Indication: Migraine
     Dosage: 200 UNIT  INJECTION??INJECT 155 UNITS IN THE MUSLCE TO 31 SITES EVERY 90 DAYS?
     Route: 030
     Dates: start: 20180307

REACTIONS (1)
  - Drug ineffective [None]
